FAERS Safety Report 4859705-0 (Version None)
Quarter: 2005Q4

REPORT INFORMATION
  Report Type: 
  Country: None (occurrence: None)
  Receive Date: 20051219
  Receipt Date: 20050121
  Transmission Date: 20060501
  Serious: Yes (Hospitalization)
  Sender: FDA-Public Use
  Company Number: FR-BRISTOL-MYERS SQUIBB COMPANY-12869343

PATIENT
  Age: 25 Year
  Sex: Female
  Weight: 70 kg

DRUGS (7)
  1. COUMADIN [Suspect]
     Indication: PHLEBITIS
     Dosage: STOPPED 03-SEP-2004, WARFARIN RE-STARTED ON AN UNSPECIFIED DATE IN SEP-2004
     Route: 048
     Dates: start: 20040901, end: 20040903
  2. COUMADIN [Suspect]
     Indication: EMBOLISM
     Dosage: STOPPED 03-SEP-2004, WARFARIN RE-STARTED ON AN UNSPECIFIED DATE IN SEP-2004
     Route: 048
     Dates: start: 20040901, end: 20040903
  3. COUMADIN [Suspect]
     Indication: THROMBOSIS
     Dosage: STOPPED 03-SEP-2004, WARFARIN RE-STARTED ON AN UNSPECIFIED DATE IN SEP-2004
     Route: 048
     Dates: start: 20040901, end: 20040903
  4. PREVISCAN [Suspect]
     Indication: PHLEBITIS
     Dosage: REPLACED WITH WARFARIN SODIUM IN SEP-2004, REINTRODUCED 3 MONTHS LATER BUT DISCONTINUED
     Route: 048
     Dates: end: 20040101
  5. PREVISCAN [Suspect]
     Indication: EMBOLISM
     Dosage: REPLACED WITH WARFARIN SODIUM IN SEP-2004, REINTRODUCED 3 MONTHS LATER BUT DISCONTINUED
     Route: 048
     Dates: end: 20040101
  6. PREVISCAN [Suspect]
     Indication: THROMBOSIS
     Dosage: REPLACED WITH WARFARIN SODIUM IN SEP-2004, REINTRODUCED 3 MONTHS LATER BUT DISCONTINUED
     Route: 048
     Dates: end: 20040101
  7. SINTROM [Concomitant]
     Indication: PHLEBITIS
     Route: 048
     Dates: start: 20041201, end: 20050112

REACTIONS (1)
  - ARTHRALGIA [None]
